FAERS Safety Report 15056891 (Version 1)
Quarter: 2018Q2

REPORT INFORMATION
  Report Type: Spontaneous
  Country: US (occurrence: US)
  Receive Date: 20180604
  Receipt Date: 20180604
  Transmission Date: 20180711
  Serious: Yes (Hospitalization)
  Sender: FDA-Public Use
  Company Number: None

PATIENT
  Age: 17 Year
  Sex: Female
  Weight: 72 kg

DRUGS (1)
  1. KYMRIAH [Suspect]
     Active Substance: TISAGENLECLEUCEL
     Indication: B-CELL TYPE ACUTE LEUKAEMIA
     Dates: start: 20180410

REACTIONS (7)
  - Cytokine release syndrome [None]
  - Pyrexia [None]
  - Coagulopathy [None]
  - Pulmonary oedema [None]
  - Mental status changes [None]
  - Neurotoxicity [None]
  - Hypoxia [None]

NARRATIVE: CASE EVENT DATE: 20180411
